FAERS Safety Report 13603900 (Version 1)
Quarter: 2017Q2

REPORT INFORMATION
  Report Type: Spontaneous
  Country: FR (occurrence: FR)
  Receive Date: 20170602
  Receipt Date: 20170602
  Transmission Date: 20170830
  Serious: Yes (Hospitalization, Other)
  Sender: FDA-Public Use
  Company Number: FR-ROCHE-1924156

PATIENT
  Age: 87 Year
  Sex: Female
  Weight: 62 kg

DRUGS (2)
  1. EYLEA [Suspect]
     Active Substance: AFLIBERCEPT
     Indication: AGE-RELATED MACULAR DEGENERATION
     Route: 031
     Dates: start: 20170125, end: 20170125
  2. LUCENTIS [Suspect]
     Active Substance: RANIBIZUMAB
     Indication: MACULAR OEDEMA
     Route: 031
     Dates: start: 20170125, end: 20170125

REACTIONS (14)
  - Tricuspid valve incompetence [Unknown]
  - Blood pressure increased [Unknown]
  - Arteriosclerosis coronary artery [Unknown]
  - Paraesthesia [Unknown]
  - Mitral valve incompetence [Unknown]
  - Pyrexia [Unknown]
  - Urinary tract infection [Unknown]
  - Dyspnoea exertional [Unknown]
  - Pyuria [Unknown]
  - Cerebrovascular accident [Unknown]
  - Pyelonephritis acute [Unknown]
  - Headache [Unknown]
  - Left ventricular hypertrophy [Unknown]
  - White blood cell count increased [Unknown]

NARRATIVE: CASE EVENT DATE: 20170205
